FAERS Safety Report 10387156 (Version 4)
Quarter: 2014Q4

REPORT INFORMATION
  Report Type: Spontaneous
  Country: BR (occurrence: BR)
  Receive Date: 20140815
  Receipt Date: 20141120
  Transmission Date: 20150528
  Serious: Yes (Other)
  Sender: FDA-Public Use
  Company Number: BR-PFIZER INC-2014225244

PATIENT
  Age: 87 Year
  Sex: Male
  Weight: 78 kg

DRUGS (7)
  1. MUCOSOLVAN [Concomitant]
     Active Substance: AMBROXOL\CLENBUTEROL
     Dosage: UNK, 1X/DAY IN THE MORNING
     Route: 055
  2. FORASEQ [Concomitant]
     Active Substance: BUDESONIDE\FORMOTEROL FUMARATE
     Dosage: UNSPECIFIED DOSAGE, 2X/DAY (ONCE IN THE MORNING AND OTHER ONE AT NIGHT)
  3. ATORVASTATIN CALCIUM. [Suspect]
     Active Substance: ATORVASTATIN CALCIUM
     Dosage: UNK
  4. ANCORON [Concomitant]
     Active Substance: AMIODARONE HYDROCHLORIDE
     Indication: CARDIAC FIBRILLATION
     Dosage: 200 MG, DAILY
     Dates: start: 2011
  5. FORASEQ [Concomitant]
     Active Substance: BUDESONIDE\FORMOTEROL FUMARATE
     Indication: ASTHMA
     Dosage: 400 MG, 2X/DAY
  6. METFORMIN [Concomitant]
     Active Substance: METFORMIN HYDROCHLORIDE
     Indication: DIABETES MELLITUS
     Dosage: 850 MG, 2X/DAY
     Dates: start: 2006
  7. LIPITOR [Suspect]
     Active Substance: ATORVASTATIN CALCIUM
     Indication: CAROTID ARTERY DISEASE
     Dosage: 20 MG, DAILY
     Route: 048
     Dates: start: 2009

REACTIONS (2)
  - Bradycardia [Unknown]
  - Ventricular hypertrophy [Not Recovered/Not Resolved]
